FAERS Safety Report 4833450-X (Version None)
Quarter: 2005Q4

REPORT INFORMATION
  Report Type: 
  Country: None (occurrence: None)
  Receive Date: 20051117
  Receipt Date: 20050921
  Transmission Date: 20060501
  Serious: Yes (Hospitalization)
  Sender: FDA-Public Use
  Company Number: EWC050644263

PATIENT
  Age: 72 Year
  Sex: Male
  Weight: 63 kg

DRUGS (12)
  1. PEMETREXED [Suspect]
     Indication: MESOTHELIOMA
     Dosage: 850 MG/1 OTHER
     Route: 050
     Dates: start: 20050523, end: 20050523
  2. CARBOPLATIN [Suspect]
     Indication: MESOTHELIOMA
     Dosage: 460 MG/1 OTHER
     Route: 050
     Dates: start: 20050523, end: 20050523
  3. DEXAMETHASONE [Concomitant]
  4. ZOFRAN [Concomitant]
  5. DOLZAM (TRAMADOL HYDROCHLORIDE) [Concomitant]
  6. ACETAMINOPHEN [Concomitant]
  7. TILDIEM RETARD (DILTIAZEM HYDROCHLORIDE) [Concomitant]
  8. ACETYLSALICYLIC ACID SRT [Concomitant]
  9. OMEPRAZOLE [Concomitant]
  10. FOLIC ACID [Concomitant]
  11. VITAMIN B-12 [Concomitant]
  12. VALTRAN [Concomitant]

REACTIONS (4)
  - EPILEPSY [None]
  - MALIGNANT NEOPLASM PROGRESSION [None]
  - MESOTHELIOMA [None]
  - METASTASES TO CENTRAL NERVOUS SYSTEM [None]
